FAERS Safety Report 8846643 (Version 1)
Quarter: 2012Q4

REPORT INFORMATION
  Report Type: 
  Country: US (occurrence: US)
  Receive Date: 20121017
  Receipt Date: 20121017
  Transmission Date: 20130627
  Serious: Yes (Other)
  Sender: FDA-Public Use
  Company Number: US-ROCHE-534547

PATIENT
  Age: 41 Year
  Sex: Female

DRUGS (6)
  1. AVASTIN [Suspect]
     Indication: BREAST CANCER
     Dosage: UNK, UNK
     Route: 065
  2. AVASTIN [Suspect]
     Indication: BREAST CANCER FEMALE
     Route: 065
  3. AVASTIN [Suspect]
     Route: 065
  4. PACLITAXEL [Suspect]
     Indication: PRODUCT USED FOR UNKNOWN INDICATION
     Route: 065
     Dates: start: 200505
  5. PACLITAXEL [Suspect]
     Route: 065
     Dates: start: 200506
  6. PACLITAXEL [Suspect]
     Route: 065
     Dates: start: 200507

REACTIONS (2)
  - Cholecystitis [Unknown]
  - Therapeutic response decreased [Unknown]
